FAERS Safety Report 21549147 (Version 1)
Quarter: 2022Q4

REPORT INFORMATION
  Report Type: Spontaneous
  Country: US (occurrence: None)
  Receive Date: 20221102
  Receipt Date: 20221102
  Transmission Date: 20230112
  Serious: Yes (Life-Threatening)
  Sender: FDA-Public Use
  Company Number: None

PATIENT
  Age: 67 Year
  Sex: Female
  Weight: 90.9 kg

DRUGS (2)
  1. STELARA [Suspect]
     Active Substance: USTEKINUMAB
     Indication: Colitis ulcerative
     Dosage: FREQUENCY : ONCE;?
     Route: 042
     Dates: start: 20221031, end: 20221031
  2. STELARA [Suspect]
     Active Substance: USTEKINUMAB
     Indication: Crohn^s disease

REACTIONS (10)
  - Blood pressure increased [None]
  - Pruritus [None]
  - Erythema [None]
  - Erythema [None]
  - Rash macular [None]
  - Paraesthesia oral [None]
  - Cough [None]
  - Throat tightness [None]
  - Dyspnoea [None]
  - Infusion related reaction [None]

NARRATIVE: CASE EVENT DATE: 20221031
